FAERS Safety Report 22300123 (Version 2)
Quarter: 2023Q2

REPORT INFORMATION
  Report Type: Report from Study
  Country: ZA (occurrence: ZA)
  Receive Date: 20230509
  Receipt Date: 20230512
  Transmission Date: 20230722
  Serious: Yes (Death, Life-Threatening, Hospitalization)
  Sender: FDA-Public Use
  Company Number: ZA-ABBVIE-4217270

PATIENT
  Age: 53 Year
  Sex: Female
  Weight: 98.8 kg

DRUGS (16)
  1. PLACEBO [Suspect]
     Active Substance: UNSPECIFIED INGREDIENT
     Indication: Psoriatic arthropathy
     Route: 058
     Dates: start: 20190115, end: 20190620
  2. PLACEBO [Suspect]
     Active Substance: UNSPECIFIED INGREDIENT
     Indication: Psoriatic arthropathy
     Route: 048
     Dates: start: 20190115, end: 20190701
  3. AMITRIPTYLINE [Concomitant]
     Active Substance: AMITRIPTYLINE
     Indication: Depression
     Dosage: AT NIGHT TIME
     Route: 048
     Dates: start: 201806
  4. AMLODIPINE BESYLATE [Concomitant]
     Active Substance: AMLODIPINE BESYLATE
     Indication: Hypertension
     Route: 048
     Dates: start: 20221114
  5. FLUTICASONE PROPIONATE [Concomitant]
     Active Substance: FLUTICASONE PROPIONATE
     Indication: Seasonal allergy
     Dosage: TIME INTERVAL: AS NECESSARY: 1 PUFF
     Route: 045
     Dates: start: 201806
  6. FOLIC ACID [Concomitant]
     Active Substance: FOLIC ACID
     Indication: Psoriatic arthropathy
     Route: 048
     Dates: start: 20210317
  7. TIBOLONE [Concomitant]
     Active Substance: TIBOLONE
     Indication: Menopausal symptoms
     Route: 048
     Dates: start: 20221001
  8. MELOXICAM [Concomitant]
     Active Substance: MELOXICAM
     Indication: Psoriatic arthropathy
     Route: 048
     Dates: start: 20210407
  9. SERDEP [Concomitant]
     Indication: Depression
     Route: 048
     Dates: start: 2005
  10. STILPANE [Concomitant]
     Indication: Psoriatic arthropathy
     Dosage: TIME INTERVAL: AS NECESSARY: THREE TIMES A DAY
     Route: 048
     Dates: start: 20170420
  11. TEARS NATRALE [Concomitant]
     Indication: Dry eye
     Dosage: TIME INTERVAL: AS NECESSARY
     Route: 047
     Dates: start: 20170926
  12. TEXA [Concomitant]
     Indication: Upper respiratory tract infection
     Route: 048
     Dates: start: 20210605
  13. TOPIRAMATE [Concomitant]
     Active Substance: TOPIRAMATE
     Indication: Migraine
     Dosage: TIME INTERVAL: AS NECESSARY
     Route: 048
     Dates: start: 2017
  14. VAGIFEM [Concomitant]
     Active Substance: ESTRADIOL
     Indication: Menopausal symptoms
     Route: 048
     Dates: start: 20221001
  15. UPADACITINIB [Suspect]
     Active Substance: UPADACITINIB
     Indication: Psoriatic arthropathy
     Route: 048
     Dates: start: 20190702, end: 20210921
  16. UPADACITINIB [Suspect]
     Active Substance: UPADACITINIB
     Indication: Psoriatic arthropathy
     Route: 048
     Dates: start: 20210922, end: 20221126

REACTIONS (4)
  - Hepatic failure [Fatal]
  - Hepatitis A [Unknown]
  - Enterococcal infection [Unknown]
  - Multiple organ dysfunction syndrome [Unknown]

NARRATIVE: CASE EVENT DATE: 20221128
